FAERS Safety Report 19835825 (Version 1)
Quarter: 2021Q3

REPORT INFORMATION
  Report Type: Spontaneous
  Country: AR (occurrence: AR)
  Receive Date: 20210915
  Receipt Date: 20210915
  Transmission Date: 20211014
  Serious: Yes (Other)
  Sender: FDA-Public Use
  Company Number: AR-PFIZER INC-202101145999

PATIENT
  Age: 59 Year
  Sex: Female

DRUGS (3)
  1. ACIDO ZOLEDRONICO [ZOLEDRONIC ACID] [Concomitant]
  2. LETROZOL [Concomitant]
     Active Substance: LETROZOLE
  3. IBRANCE [Suspect]
     Active Substance: PALBOCICLIB
     Indication: BREAST CANCER METASTATIC
     Dosage: 125 MG, CYCLIC (DAILY, SCHEME 3X1)
     Dates: start: 20181225

REACTIONS (4)
  - COVID-19 [Recovering/Resolving]
  - Tendonitis [Recovering/Resolving]
  - Wound complication [Recovering/Resolving]
  - Immune system disorder [Recovering/Resolving]

NARRATIVE: CASE EVENT DATE: 20210819
